FAERS Safety Report 8291479-6 (Version None)
Quarter: 2012Q2

REPORT INFORMATION
  Report Type: 
  Country: None (occurrence: None)
  Receive Date: 20120412
  Receipt Date: 20120406
  Transmission Date: 20120825
  Serious: Yes (Disabling)
  Sender: FDA-Public Use
  Company Number: 2012SP005012

PATIENT
  Age: 64 Year
  Sex: Female
  Weight: 54.4316 kg

DRUGS (3)
  1. DULERA [Suspect]
     Indication: DYSPNOEA
     Dosage: 1 DF;BID;INH
     Route: 055
     Dates: start: 20110928, end: 20111019
  2. DULERA [Suspect]
     Indication: WHEEZING
     Dosage: 1 DF;BID;INH
     Route: 055
     Dates: start: 20110928, end: 20111019
  3. DULERA [Suspect]
     Indication: ASTHMA
     Dosage: 1 DF;BID;INH
     Route: 055
     Dates: start: 20110928, end: 20111019

REACTIONS (4)
  - EYE PRURITUS [None]
  - LACRIMATION INCREASED [None]
  - VISION BLURRED [None]
  - OCULAR HYPERAEMIA [None]
